FAERS Safety Report 5873789-2 (Version None)
Quarter: 2008Q3

REPORT INFORMATION
  Report Type: 
  Country: None (occurrence: None)
  Receive Date: 20080908
  Receipt Date: 20080903
  Transmission Date: 20090109
  Serious: Yes (Death, Hospitalization, Other)
  Sender: FDA-Public Use
  Company Number: US-ABBOTT-08P-163-0474149-00

PATIENT
  Sex: Male

DRUGS (4)
  1. HUMIRA [Suspect]
     Indication: CROHN'S DISEASE
     Dosage: ONCE
     Route: 058
     Dates: start: 20080101
  2. HUMIRA [Suspect]
     Dosage: ONCE
     Route: 058
  3. HUMIRA [Suspect]
     Route: 058
  4. MESALAMINE [Concomitant]
     Indication: CROHN'S DISEASE
     Route: 048

REACTIONS (6)
  - DEHYDRATION [None]
  - IMMUNOSUPPRESSION [None]
  - MENINGITIS LISTERIA [None]
  - PAIN [None]
  - PYREXIA [None]
  - UNRESPONSIVE TO STIMULI [None]
